FAERS Safety Report 6698512-3 (Version None)
Quarter: 2010Q2

REPORT INFORMATION
  Report Type: 
  Country: None (occurrence: None)
  Receive Date: 20100426
  Receipt Date: 20100426
  Transmission Date: 20101027
  Serious: Yes (Death)
  Sender: FDA-Public Use
  Company Number: None

PATIENT
  Sex: Male
  Weight: 90.5 kg

DRUGS (9)
  1. ABRAXANE [Suspect]
     Indication: PANCREATIC CARCINOMA
     Dosage: 200 MG D1,D8,D15/CYCLE 042
     Dates: start: 20100304, end: 20100401
  2. VANDETANIB [Suspect]
     Indication: PANCREATIC CARCINOMA
     Dosage: 300 MG QD X 28 DAYS 047
     Route: 048
     Dates: start: 20100304, end: 20100403
  3. LOVENOX [Concomitant]
  4. METOPROLOL [Concomitant]
  5. GLIMEPIRIDE [Concomitant]
  6. OXYCODONE [Concomitant]
  7. OXYCONTIN [Concomitant]
  8. SPIRONOLACTONE [Concomitant]
  9. ZOLPIDEM [Concomitant]

REACTIONS (2)
  - ASTHENIA [None]
  - DISEASE PROGRESSION [None]
